FAERS Safety Report 16421392 (Version 2)
Quarter: 2019Q3

REPORT INFORMATION
  Report Type: Spontaneous
  Country: US (occurrence: US)
  Receive Date: 20190612
  Receipt Date: 20190904
  Transmission Date: 20191004
  Serious: Yes (Other)
  Sender: FDA-Public Use
  Company Number: US-JNJFOC-20190610228

PATIENT
  Age: 51 Year
  Sex: Male
  Weight: 86.26 kg

DRUGS (1)
  1. TREMFYA [Suspect]
     Active Substance: GUSELKUMAB
     Indication: PSORIASIS
     Route: 058
     Dates: start: 20181120, end: 20190531

REACTIONS (4)
  - Seizure [Recovered/Resolved]
  - Product dose omission [Unknown]
  - Arthralgia [Unknown]
  - Joint swelling [Recovered/Resolved]

NARRATIVE: CASE EVENT DATE: 201904
